FAERS Safety Report 4907178-1 (Version None)
Quarter: 2006Q1

REPORT INFORMATION
  Report Type: 
  Country: None (occurrence: None)
  Receive Date: 20060206
  Receipt Date: 20060125
  Transmission Date: 20060701
  Serious: Yes (Hospitalization, Other)
  Sender: FDA-Public Use
  Company Number: HQWYE105220DEC05

PATIENT
  Age: 50 Year
  Sex: Female

DRUGS (14)
  1. RAPAMUNE [Suspect]
     Indication: PROPHYLAXIS AGAINST TRANSPLANT REJECTION
     Dosage: 2 MG 1X PER 1 DAY ORAL
     Route: 048
     Dates: start: 20030502
  2. FAMOTIDINE [Concomitant]
  3. MAGNESIUM CARBONATE (MAGNESIUM CARBONATE) [Concomitant]
  4. CALCIUM   PHARMAVIT  (CALCIUM CARBONATE/RIBOFLAVIN SODIUM PHOSPHATE) [Concomitant]
  5. ALLOPURINOL [Concomitant]
  6. AKTIFERRIN (FERROUS SULFATE/SERINE) [Concomitant]
  7. BISEPTOL (SULFAMETHOXAZOLE/TRIMETHOPRIM) [Concomitant]
  8. BETAXOLOL HYDROCHLORIDE (BETAXOLOL HYDROCHLORIDE) [Concomitant]
  9. DILTIAZEM HYDROCHLORIDE [Concomitant]
  10. FOSINOPRIL SODIUM [Concomitant]
  11. TELMISARTAN (TELMISARTAN) [Concomitant]
  12. ATORVASTATIN CALCIUM [Concomitant]
  13. MYCOPHENOLATE MOFETIL (MYCOPHENOLATE MOFETIL) [Concomitant]
  14. PREDNISONUM (PREDNISONE) [Concomitant]

REACTIONS (1)
  - RENAL CELL CARCINOMA STAGE UNSPECIFIED [None]
